FAERS Safety Report 9746099 (Version 2)
Quarter: 2013Q4

REPORT INFORMATION
  Report Type: Spontaneous
  Country: IT (occurrence: IT)
  Receive Date: 20131211
  Receipt Date: 20131211
  Transmission Date: 20140711
  Serious: No
  Sender: FDA-Public Use
  Company Number: IT-GILEAD-2009-0024074

PATIENT
  Age: 56 Year
  Sex: Male

DRUGS (1)
  1. ATRIPLA [Suspect]
     Indication: HIV INFECTION
     Route: 048
     Dates: start: 20090825, end: 20090831

REACTIONS (8)
  - Hypertension [Unknown]
  - Hyperpyrexia [Unknown]
  - Myalgia [Unknown]
  - Erectile dysfunction [Unknown]
  - Vertigo [Unknown]
  - Hallucination [Unknown]
  - Fatigue [Unknown]
  - Disturbance in attention [Unknown]
